FAERS Safety Report 9678879 (Version 1)
Quarter: 2013Q4

REPORT INFORMATION
  Report Type: Spontaneous
  Country: GB (occurrence: GB)
  Receive Date: 20131108
  Receipt Date: 20131108
  Transmission Date: 20140711
  Serious: Yes (Other)
  Sender: FDA-Public Use
  Company Number: GB-BAYER-2013-134269

PATIENT
  Sex: Male

DRUGS (2)
  1. CANESTEN ORAL CAPSULE [Suspect]
     Indication: BALANITIS CANDIDA
     Dosage: UNK
     Dates: start: 20131028
  2. CANESTEN THRUSH CREAM [Suspect]
     Indication: BALANITIS CANDIDA
     Dosage: UNK
     Dates: start: 20131028

REACTIONS (3)
  - Skin haemorrhage [None]
  - Pain of skin [None]
  - No therapeutic response [None]
